FAERS Safety Report 4576043-4 (Version None)
Quarter: 2005Q1

REPORT INFORMATION
  Report Type: 
  Country: None (occurrence: None)
  Receive Date: 20050204
  Receipt Date: 20050120
  Transmission Date: 20050727
  Serious: No
  Sender: FDA-Public Use
  Company Number: 2005AP00513

PATIENT
  Age: 61 Year
  Sex: Male

DRUGS (1)
  1. IRESSA [Suspect]
     Indication: LUNG ADENOCARCINOMA
     Dosage: 250 MG DAILY PO
     Route: 048

REACTIONS (3)
  - DERMATITIS ACNEIFORM [None]
  - HEPATIC FUNCTION ABNORMAL [None]
  - PRURITUS [None]
